FAERS Safety Report 13707068 (Version 2)
Quarter: 2017Q3

REPORT INFORMATION
  Report Type: Spontaneous
  Country: US (occurrence: US)
  Receive Date: 20170630
  Receipt Date: 20170802
  Transmission Date: 20171127
  Serious: No
  Sender: FDA-Public Use
  Company Number: US-GLAXOSMITHKLINE-US2017100500

PATIENT
  Age: 67 Year
  Sex: Male

DRUGS (17)
  1. COLACE [Concomitant]
     Active Substance: DOCUSATE SODIUM
  2. LANSOPRAZOLE. [Concomitant]
     Active Substance: LANSOPRAZOLE
  3. ZINC. [Concomitant]
     Active Substance: ZINC
  4. LEVOTHYROXINE. [Concomitant]
     Active Substance: LEVOTHYROXINE
  5. BREO ELLIPTA [Suspect]
     Active Substance: FLUTICASONE FUROATE\VILANTEROL TRIFENATATE
     Indication: CHRONIC OBSTRUCTIVE PULMONARY DISEASE
  6. MIRALAX [Concomitant]
     Active Substance: POLYETHYLENE GLYCOL 3350
  7. VITAMIN A [Concomitant]
     Active Substance: VITAMIN A
  8. OXYCODONE [Concomitant]
     Active Substance: OXYCODONE
  9. LEVOCETIRIZINE [Concomitant]
     Active Substance: LEVOCETIRIZINE
  10. PROMETHAZINE [Concomitant]
     Active Substance: PROMETHAZINE\PROMETHAZINE HYDROCHLORIDE
  11. ZOLPIDEM [Concomitant]
     Active Substance: ZOLPIDEM\ZOLPIDEM TARTRATE
  12. BREO ELLIPTA [Suspect]
     Active Substance: FLUTICASONE FUROATE\VILANTEROL TRIFENATATE
     Indication: EMPHYSEMA
     Dosage: 1 PUFF(S), QD
     Route: 055
     Dates: start: 20170516, end: 20170627
  13. BREO ELLIPTA [Suspect]
     Active Substance: FLUTICASONE FUROATE\VILANTEROL TRIFENATATE
     Indication: ASTHMA
  14. VITAMIN C [Concomitant]
     Active Substance: ASCORBIC ACID
  15. BUPROPION. [Concomitant]
     Active Substance: BUPROPION
  16. ALPRAZOLAM. [Concomitant]
     Active Substance: ALPRAZOLAM
  17. FINASTERIDE. [Concomitant]
     Active Substance: FINASTERIDE

REACTIONS (1)
  - Drug ineffective [Not Recovered/Not Resolved]

NARRATIVE: CASE EVENT DATE: 20170516
